FAERS Safety Report 6997643-8 (Version None)
Quarter: 2010Q3

REPORT INFORMATION
  Report Type: 
  Country: None (occurrence: None)
  Receive Date: 20100918
  Receipt Date: 20091113
  Transmission Date: 20110219
  Serious: No
  Sender: FDA-Public Use
  Company Number: US-WYE-H12176709

PATIENT
  Sex: Female

DRUGS (1)
  1. PREMPRO [Suspect]
     Indication: HORMONE REPLACEMENT THERAPY
     Dosage: 0.625/2.5MG DAILY
     Route: 048
     Dates: start: 20070101

REACTIONS (2)
  - POSTMENOPAUSAL HAEMORRHAGE [None]
  - PRODUCT SIZE ISSUE [None]
